FAERS Safety Report 8301812-4 (Version None)
Quarter: 2012Q2

REPORT INFORMATION
  Report Type: 
  Country: None (occurrence: None)
  Receive Date: 20120418
  Receipt Date: 20120418
  Transmission Date: 20120825
  Serious: No
  Sender: FDA-Public Use
  Company Number: None

PATIENT

DRUGS (2)
  1. NORCO [Suspect]
  2. NORCO [Suspect]

REACTIONS (1)
  - DRUG DISPENSING ERROR [None]
